FAERS Safety Report 11634487 (Version 2)
Quarter: 2015Q4

REPORT INFORMATION
  Report Type: Spontaneous
  Country: JP (occurrence: JP)
  Receive Date: 20151015
  Receipt Date: 20151130
  Transmission Date: 20160304
  Serious: Yes (Other)
  Sender: FDA-Public Use
  Company Number: JP-BAYER-2015-440286

PATIENT
  Age: 88 Year
  Sex: Male

DRUGS (2)
  1. BAYASPIRIN [Suspect]
     Active Substance: ASPIRIN
     Route: 048
  2. TAKEPRON [Suspect]
     Active Substance: LANSOPRAZOLE

REACTIONS (1)
  - Pancytopenia [Recovering/Resolving]
